FAERS Safety Report 11922591 (Version 3)
Quarter: 2016Q1

REPORT INFORMATION
  Report Type: Report from Study
  Country: US (occurrence: US)
  Receive Date: 20160115
  Receipt Date: 20160219
  Transmission Date: 20160526
  Serious: Yes (Hospitalization)
  Sender: FDA-Public Use
  Company Number: US-EXELIXIS-XL18416005935

PATIENT
  Age: 55 Year
  Sex: Male
  Weight: 71.8 kg

DRUGS (11)
  1. XL184 [Suspect]
     Active Substance: CABOZANTINIB
     Dosage: 40 MG, QD
     Route: 048
     Dates: start: 20160126
  2. XL184 [Suspect]
     Active Substance: CABOZANTINIB
     Indication: HEPATOCELLULAR CARCINOMA
     Dosage: 60 MG, QD
     Route: 048
     Dates: start: 20151222, end: 20160107
  3. NADOLOL. [Concomitant]
     Active Substance: NADOLOL
  4. PROCHLORPERAZINE. [Concomitant]
     Active Substance: PROCHLORPERAZINE
  5. ENTECAVIR. [Concomitant]
     Active Substance: ENTECAVIR
  6. TENOFOVIR [Concomitant]
     Active Substance: TENOFOVIR
  7. COLACE [Concomitant]
     Active Substance: DOCUSATE SODIUM
  8. VITAMIN D3 [Concomitant]
     Active Substance: CHOLECALCIFEROL
  9. OMEPRAZOLE. [Concomitant]
     Active Substance: OMEPRAZOLE
  10. MULTIVITAMIN [Concomitant]
     Active Substance: VITAMINS
  11. ONDANSETRON [Concomitant]
     Active Substance: ONDANSETRON

REACTIONS (1)
  - Hepatic encephalopathy [Not Recovered/Not Resolved]

NARRATIVE: CASE EVENT DATE: 20160106
